FAERS Safety Report 13945299 (Version 3)
Quarter: 2018Q3

REPORT INFORMATION
  Report Type: Spontaneous
  Country: US (occurrence: US)
  Receive Date: 20170907
  Receipt Date: 20180719
  Transmission Date: 20181010
  Serious: Yes (Hospitalization, Other)
  Sender: FDA-Public Use
  Company Number: US-DSJP-DSU-2017-135456

PATIENT

DRUGS (2)
  1. BENICAR [Suspect]
     Active Substance: OLMESARTAN MEDOXOMIL
     Indication: PRODUCT USED FOR UNKNOWN INDICATION
     Dosage: 20 MG,QD
     Dates: start: 20100920, end: 20140814
  2. BENICAR HCT [Suspect]
     Active Substance: HYDROCHLOROTHIAZIDE\OLMESARTAN MEDOXOMIL
     Indication: PRODUCT USED FOR UNKNOWN INDICATION
     Dosage: 40?25 MG , QD
     Route: 048
     Dates: start: 20100920, end: 20140814

REACTIONS (7)
  - Gastrooesophageal reflux disease [Unknown]
  - Appendicitis [Unknown]
  - Colitis [Recovering/Resolving]
  - Enterocutaneous fistula [Unknown]
  - Acute kidney injury [Unknown]
  - Peritonitis [Unknown]
  - Hypotension [Unknown]

NARRATIVE: CASE EVENT DATE: 20140430
